FAERS Safety Report 14360613 (Version 1)
Quarter: 2018Q1

REPORT INFORMATION
  Report Type: Spontaneous
  Country: US (occurrence: US)
  Receive Date: 20180106
  Receipt Date: 20180106
  Transmission Date: 20180509
  Serious: Yes (Other)
  Sender: FDA-Public Use
  Company Number: US-MYLANLABS-2017M1083374

PATIENT
  Sex: Male
  Weight: 19.96 kg

DRUGS (2)
  1. FELBATOL [Concomitant]
     Active Substance: FELBAMATE
     Indication: SEIZURE
     Dosage: 9 ML, 5 ML IN MORNING AND 4 ML AT NIGHT
     Route: 048
     Dates: start: 201501
  2. FELBAMATE MYLAN [Suspect]
     Active Substance: FELBAMATE
     Indication: SEIZURE
     Dosage: 5 ML, UNK
     Dates: start: 201509, end: 2016

REACTIONS (3)
  - Seizure [Unknown]
  - Drug ineffective [Unknown]
  - Atonic seizures [Unknown]
